FAERS Safety Report 4790238-6 (Version None)
Quarter: 2005Q3

REPORT INFORMATION
  Report Type: 
  Country: None (occurrence: None)
  Receive Date: 20050914
  Receipt Date: 20050214
  Transmission Date: 20060218
  Serious: Yes (Death)
  Sender: FDA-Public Use
  Company Number: 062-20785-05020299

PATIENT
  Age: 62 Year
  Sex: Male

DRUGS (1)
  1. THALIDOMIDE  - PHARMION (THALIDOMIDE) (50 MILLIGRAM, CAPSULES) [Suspect]
     Indication: PLASMACYTOMA
     Dosage: 500 MG, DAILY, ORAL
     Route: 048
     Dates: start: 20041001

REACTIONS (5)
  - DEATH [None]
  - DISEASE PROGRESSION [None]
  - GENERAL PHYSICAL HEALTH DETERIORATION [None]
  - PLATELET COUNT DECREASED [None]
  - WHITE BLOOD CELL COUNT DECREASED [None]
